FAERS Safety Report 6093856-0 (Version None)
Quarter: 2009Q1

REPORT INFORMATION
  Report Type: 
  Country: None (occurrence: None)
  Receive Date: 20090226
  Receipt Date: 20090217
  Transmission Date: 20090719
  Serious: Yes (Hospitalization)
  Sender: FDA-Public Use
  Company Number: FR-PFIZER INC-2009171981

PATIENT

DRUGS (2)
  1. LYRICA [Suspect]
     Route: 048
     Dates: start: 20081226, end: 20090116
  2. SEROPRAM [Suspect]
     Indication: DEPRESSION
     Route: 048
     Dates: start: 20081201, end: 20090116

REACTIONS (1)
  - AGRANULOCYTOSIS [None]
